FAERS Safety Report 25910595 (Version 2)
Quarter: 2025Q4

REPORT INFORMATION
  Report Type: Spontaneous
  Country: CN (occurrence: CN)
  Receive Date: 20251013
  Receipt Date: 20251013
  Transmission Date: 20260117
  Serious: Yes (Other)
  Sender: PHARMOBEDIENT CONSULTING, LLC
  Company Number: CN-Pharmobedient-000294

PATIENT
  Sex: Male
  Weight: 0 kg

DRUGS (2)
  1. OXALIPLATIN [Suspect]
     Active Substance: OXALIPLATIN
     Indication: Adenocarcinoma gastric stage II
     Dosage: ON DAY 1
     Route: 042
  2. GIMERACIL\OTERACIL\TEGAFUR [Suspect]
     Active Substance: GIMERACIL\OTERACIL POTASSIUM\TEGAFUR
     Indication: Adenocarcinoma gastric stage II
     Dosage: DAYS 1 TO 14, ADMINISTERED EVERY THREE WEEKS
     Route: 048

REACTIONS (3)
  - Myelosuppression [Unknown]
  - Anaemia [Unknown]
  - Drug intolerance [Unknown]
